FAERS Safety Report 7015591-4 (Version None)
Quarter: 2010Q3

REPORT INFORMATION
  Report Type: 
  Country: None (occurrence: None)
  Receive Date: 20100927
  Receipt Date: 20100922
  Transmission Date: 20110219
  Serious: Yes (Life-Threatening, Hospitalization)
  Sender: FDA-Public Use
  Company Number: FR-BRISTOL-MYERS SQUIBB COMPANY-15302862

PATIENT
  Age: 62 Year
  Sex: Male

DRUGS (3)
  1. ABILIFY [Suspect]
     Dosage: STARTED 10MG AND THE DOSE INCREASED TO 20MG
  2. LARGACTIL [Concomitant]
  3. DEPAKOTE [Concomitant]

REACTIONS (2)
  - DIABETES INSIPIDUS [None]
  - PANCREATITIS ACUTE [None]
